FAERS Safety Report 4890894-8 (Version None)
Quarter: 2005Q4

REPORT INFORMATION
  Report Type: 
  Country: None (occurrence: None)
  Receive Date: 20051220
  Receipt Date: 20051110
  Transmission Date: 20060501
  Serious: Yes (Other)
  Sender: FDA-Public Use
  Company Number: 424454

PATIENT
  Age: 78 Year
  Sex: Female

DRUGS (4)
  1. BONIVA [Suspect]
     Indication: OSTEOPOROSIS
     Dosage: 1 PER MONTH ORAL
     Route: 048
     Dates: start: 20051015, end: 20051015
  2. PREMARIN [Concomitant]
  3. ACTONEL [Concomitant]
  4. FOSAMAX [Concomitant]

REACTIONS (1)
  - DIZZINESS [None]
